FAERS Safety Report 4727399-0 (Version None)
Quarter: 2005Q3

REPORT INFORMATION
  Report Type: 
  Country: None (occurrence: None)
  Receive Date: 20050727
  Receipt Date: 20050727
  Transmission Date: 20060218
  Serious: Yes (Hospitalization)
  Sender: FDA-Public Use
  Company Number: None

PATIENT
  Age: 53 Year
  Sex: Male
  Weight: 107.9561 kg

DRUGS (4)
  1. CLOPIDOGREL BISULFATE [Suspect]
     Indication: STENT PLACEMENT
     Dosage: 75 MG PO DAILY
     Route: 048
  2. ASPIRIN [Suspect]
     Indication: STENT PLACEMENT
     Dosage: 81 MG PO DAILY
     Route: 048
  3. LIPITOR [Concomitant]
  4. LISINOPRIL [Concomitant]

REACTIONS (8)
  - ABDOMINAL PAIN UPPER [None]
  - DUODENITIS [None]
  - DYSPEPSIA [None]
  - GASTRITIS [None]
  - HAEMATEMESIS [None]
  - NAUSEA [None]
  - OESOPHAGITIS [None]
  - ULCER [None]
